FAERS Safety Report 13511303 (Version 2)
Quarter: 2017Q2

REPORT INFORMATION
  Report Type: Report from Study
  Country: US (occurrence: US)
  Receive Date: 20170503
  Receipt Date: 20170630
  Transmission Date: 20170830
  Serious: Yes (Other)
  Sender: FDA-Public Use
  Company Number: PHEH2017US012923

PATIENT
  Age: 33 Year
  Sex: Male
  Weight: 74.5 kg

DRUGS (1)
  1. GILENYA [Suspect]
     Active Substance: FINGOLIMOD HYDROCHLORIDE
     Indication: MULTIPLE SCLEROSIS
     Dosage: 0.5 MG, QD
     Route: 048
     Dates: end: 20170425

REACTIONS (1)
  - Tumefactive multiple sclerosis [Unknown]

NARRATIVE: CASE EVENT DATE: 20170425
